APPROVED DRUG PRODUCT: RIOCIGUAT
Active Ingredient: RIOCIGUAT
Strength: 2.5MG
Dosage Form/Route: TABLET;ORAL
Application: A211135 | Product #005 | TE Code: AB
Applicant: MSN LABORATORIES PRIVATE LTD
Approved: Sep 1, 2022 | RLD: No | RS: No | Type: RX